FAERS Safety Report 7352563-4 (Version None)
Quarter: 2011Q1

REPORT INFORMATION
  Report Type: 
  Country: None (occurrence: None)
  Receive Date: 20110315
  Receipt Date: 20110311
  Transmission Date: 20110831
  Serious: Yes (Other)
  Sender: FDA-Public Use
  Company Number: US-PFIZER INC-2011054665

PATIENT
  Sex: Female
  Weight: 59 kg

DRUGS (6)
  1. PLAVIX [Suspect]
     Dosage: UNK
     Route: 048
  2. ALPRAZOLAM [Suspect]
     Indication: ANXIETY
     Dosage: 0.5 MG, AS NEEDED
     Route: 048
  3. CLONIDINE [Concomitant]
     Indication: HYPERTENSION
     Dosage: 0.2 MG, 2X/DAY
     Route: 048
  4. METOPROLOL [Concomitant]
     Indication: HYPERTENSION
     Dosage: 50 MG, 1X/DAY
  5. DILTIAZEM [Concomitant]
     Indication: HYPERTENSION
     Dosage: 120 MG, 1X/DAY
     Route: 048
  6. AMILORIDE [Concomitant]
     Dosage: 5 MG, 1X/DAY

REACTIONS (4)
  - IMPAIRED GASTRIC EMPTYING [None]
  - GASTROOESOPHAGEAL REFLUX DISEASE [None]
  - GASTRITIS EROSIVE [None]
  - DYSPEPSIA [None]
